FAERS Safety Report 7552355-7 (Version None)
Quarter: 2011Q2

REPORT INFORMATION
  Report Type: 
  Country: None (occurrence: None)
  Receive Date: 20110616
  Receipt Date: 20081017
  Transmission Date: 20111010
  Serious: Yes (Death)
  Sender: FDA-Public Use
  Company Number: PHHY2008US24468

PATIENT
  Sex: Female

DRUGS (1)
  1. CLOZAPINE [Suspect]
     Dosage: 100 MG, 3 TABS IN THE MORNING AND 4 TABS AT BED TIME

REACTIONS (1)
  - NEOPLASM MALIGNANT [None]
